FAERS Safety Report 7417690-1 (Version None)
Quarter: 2011Q2

REPORT INFORMATION
  Report Type: 
  Country: None (occurrence: None)
  Receive Date: 20110415
  Receipt Date: 20110412
  Transmission Date: 20111010
  Serious: Yes (Other)
  Sender: FDA-Public Use
  Company Number: AU-PFIZER INC-2011079718

PATIENT
  Sex: Female

DRUGS (1)
  1. CHAMPIX [Suspect]
     Dosage: UNK
     Dates: start: 20110301, end: 20110408

REACTIONS (8)
  - PERSONALITY CHANGE [None]
  - FRUSTRATION [None]
  - AGITATION [None]
  - AGGRESSION [None]
  - FEELING ABNORMAL [None]
  - CHEST DISCOMFORT [None]
  - HEADACHE [None]
  - HYPERHIDROSIS [None]
